FAERS Safety Report 18639886 (Version 1)
Quarter: 2020Q4

REPORT INFORMATION
  Report Type: Spontaneous
  Country: US (occurrence: US)
  Receive Date: 20201220
  Receipt Date: 20201220
  Transmission Date: 20210114
  Serious: Yes (Other)
  Sender: FDA-Public Use
  Company Number: US-PACIRA-201900413

PATIENT
  Age: 34 Year
  Sex: Female
  Weight: 74 kg

DRUGS (11)
  1. FENTANYL. [Suspect]
     Active Substance: FENTANYL
     Indication: HAEMORRHOID OPERATION
     Dosage: 100 MCG
     Route: 065
  2. PROPOFOL. [Suspect]
     Active Substance: PROPOFOL
     Indication: HAEMORRHOID OPERATION
     Dosage: 462.9 MG
     Route: 065
  3. EXPAREL [Suspect]
     Active Substance: BUPIVACAINE
     Indication: HAEMORRHOID OPERATION
     Dosage: UNKNOWN
     Route: 065
  4. ALBUTEROL HFA INHALER [Concomitant]
     Active Substance: ALBUTEROL
     Indication: PRODUCT USED FOR UNKNOWN INDICATION
     Dosage: UNKNOWN
     Route: 065
  5. BENZONATATE. [Concomitant]
     Active Substance: BENZONATATE
     Indication: PRODUCT USED FOR UNKNOWN INDICATION
     Dosage: 200 MG
     Route: 065
  6. BUPIVACAINE. [Suspect]
     Active Substance: BUPIVACAINE
     Indication: HAEMORRHOID OPERATION
     Dosage: 30 ML
     Route: 065
  7. IBUPROFEN. [Concomitant]
     Active Substance: IBUPROFEN
     Indication: PRODUCT USED FOR UNKNOWN INDICATION
     Dosage: 200 MG
     Route: 065
  8. VALIUM [Suspect]
     Active Substance: DIAZEPAM
     Indication: HAEMORRHOID OPERATION
     Dosage: 5 MG
     Route: 065
  9. MIDAZOLAM. [Suspect]
     Active Substance: MIDAZOLAM
     Indication: HAEMORRHOID OPERATION
     Dosage: 2 MG
     Route: 065
  10. TORADOL [Suspect]
     Active Substance: KETOROLAC TROMETHAMINE
     Indication: HAEMORRHOID OPERATION
     Dosage: 15 MG
     Route: 065
  11. AZITHROMYCIN ANHYDROUS. [Concomitant]
     Active Substance: AZITHROMYCIN ANHYDROUS
     Indication: PRODUCT USED FOR UNKNOWN INDICATION
     Dosage: 250 MG
     Route: 065

REACTIONS (1)
  - Urinary retention [Recovered/Resolved]

NARRATIVE: CASE EVENT DATE: 20191115
